FAERS Safety Report 8412141-2 (Version None)
Quarter: 2012Q2

REPORT INFORMATION
  Report Type: 
  Country: None (occurrence: None)
  Receive Date: 20120605
  Receipt Date: 20120504
  Transmission Date: 20120825
  Serious: No
  Sender: FDA-Public Use
  Company Number: US-AMGEN-USASP2012028460

PATIENT
  Age: 80 Year
  Sex: Female

DRUGS (1)
  1. ENBREL [Suspect]
     Indication: SYSTEMIC LUPUS ERYTHEMATOSUS
     Dosage: 50 MG, QWK
     Dates: start: 20010306

REACTIONS (8)
  - JAW DISORDER [None]
  - DRUG ADMINISTRATION ERROR [None]
  - MEMORY IMPAIRMENT [None]
  - LOCALISED INFECTION [None]
  - AIR EMBOLISM [None]
  - FATIGUE [None]
  - OPEN WOUND [None]
  - TOOTH FRACTURE [None]
